FAERS Safety Report 16041432 (Version 1)
Quarter: 2019Q1

REPORT INFORMATION
  Report Type: Spontaneous
  Country: US (occurrence: US)
  Receive Date: 20190306
  Receipt Date: 20190306
  Transmission Date: 20190418
  Serious: No
  Sender: FDA-Public Use
  Company Number: US-AKORN PHARMACEUTICALS-2018AKN02111

PATIENT
  Age: 25 Year
  Sex: Female

DRUGS (2)
  1. UNSPECIFIED SUNSCREEN [Suspect]
     Active Substance: UNSPECIFIED INGREDIENT
  2. MYORISAN [Suspect]
     Active Substance: ISOTRETINOIN
     Dosage: UNK
     Dates: start: 20181203

REACTIONS (2)
  - Rash pruritic [Unknown]
  - Rash papular [Unknown]

NARRATIVE: CASE EVENT DATE: 201812
